FAERS Safety Report 9033560 (Version 2)
Quarter: 2013Q2

REPORT INFORMATION
  Report Type: Other
  Country: GB (occurrence: GB)
  Receive Date: 20130128
  Receipt Date: 20130621
  Transmission Date: 20140414
  Serious: Yes (Hospitalization, Other)
  Sender: FDA-Public Use
  Company Number: GB-WATSON-2013-01161

PATIENT
  Age: 16 Year
  Sex: Female

DRUGS (59)
  1. DOXORUBICIN [Suspect]
     Indication: CHEMOTHERAPY
     Dosage: 52 MG, DAILY
     Route: 042
     Dates: start: 20121017, end: 20121018
  2. DOXORUBICIN [Suspect]
     Dosage: 52 MG, DAILY
     Route: 042
     Dates: start: 20120922, end: 20120923
  3. ONDANSETRON HYDROCHLORIDE (UNKNOWN) [Suspect]
     Indication: PROPHYLAXIS OF NAUSEA AND VOMITING
     Dosage: 8 MG, UNKNOWN. DOSAGE FORM: INJECTION, ONCE
     Route: 042
     Dates: start: 20120924, end: 20120924
  4. ONDANSETRON HYDROCHLORIDE (UNKNOWN) [Suspect]
     Dosage: 8 MG, DAILY DOSAGE FORM: INJECTION, P.R.N
     Route: 042
     Dates: start: 20121007, end: 20121007
  5. ONDANSETRON HYDROCHLORIDE (UNKNOWN) [Suspect]
     Dosage: 7 MG, DAILY
     Route: 042
     Dates: start: 20120921, end: 20120924
  6. ONDANSETRON HYDROCHLORIDE (UNKNOWN) [Suspect]
     Dosage: 8 MG, DAILY. DOSAGE FORM: TABLET, CYCLE 2 SEQUENCE 1
     Route: 065
     Dates: start: 20121018, end: 20121018
  7. ONDANSETRON HYDROCHLORIDE (UNKNOWN) [Suspect]
     Dosage: 8 MG, DAILY. DOSAGE FORM: TABLET
     Route: 065
     Dates: start: 20120927, end: 20120927
  8. ONDANSETRON HYDROCHLORIDE (UNKNOWN) [Suspect]
     Dosage: 8 MG, DAILY. DOSAGE FORM: TABLET
     Route: 065
     Dates: start: 20120926, end: 20120927
  9. ONDANSETRON HYDROCHLORIDE (UNKNOWN) [Suspect]
     Dosage: 8 MG, BID. DOSAGE FORM: TABLET, P.R.N
     Route: 065
     Dates: start: 20120925, end: 20120925
  10. ONDANSETRON HYDROCHLORIDE (UNKNOWN) [Suspect]
     Dosage: 8 MG, UNKNOWN. DOSAGE FORM: TABLET, ONCE
     Dates: start: 20120924, end: 20120924
  11. ONDANSETRON HYDROCHLORIDE (UNKNOWN) [Suspect]
     Dosage: 8 MG, DAILY. DOSAGE FORM: TABLET, CYCLE 2 SEQUENCE 1
     Route: 065
     Dates: start: 20121019, end: 20121019
  12. ONDANSETRON HYDROCHLORIDE (UNKNOWN) [Suspect]
     Dosage: 8 MG, DAILY
     Route: 048
     Dates: start: 20121017, end: 20121017
  13. DEXAMETHASONE (WATSON LABORATORIES) [Suspect]
     Indication: PROPHYLAXIS OF NAUSEA AND VOMITING
     Dosage: 10 ML, DAILY.
     Route: 042
     Dates: start: 20120921, end: 20120921
  14. DEXAMETHASONE (WATSON LABORATORIES) [Suspect]
     Dosage: 10 ML, DAILY
     Route: 042
     Dates: start: 20120922, end: 20120922
  15. DEXAMETHASONE (WATSON LABORATORIES) [Suspect]
     Dosage: 10 ML, DAILY
     Route: 042
     Dates: start: 20120923, end: 20120923
  16. DEXAMETHASONE (WATSON LABORATORIES) [Suspect]
     Dosage: 10 ML, DAILY
     Route: 042
     Dates: start: 20120924, end: 20120924
  17. APREPITANT [Suspect]
     Indication: PROPHYLAXIS OF NAUSEA AND VOMITING
     Dosage: 80 MG, DAILY. DOSAGE FORM: CAPSULES, CYCLE 4 SEQUENCE 1
     Route: 048
     Dates: start: 20121129, end: 20121129
  18. APREPITANT [Suspect]
     Dosage: 80 MG, DAILY. DOSAGE FORM: CAPSULES, CYCLE 2 SEQUENCE 1
     Route: 048
     Dates: start: 20121109, end: 20121109
  19. APREPITANT [Suspect]
     Dosage: 80 MG, DAILY. DOSAGE FORM: CAPSULES, CYCLE 3 SEQUENCE 2
     Route: 048
     Dates: start: 20121108, end: 20121108
  20. APREPITANT [Suspect]
     Dosage: 125MG, DAILY. DOSAGE FORM: CAPSULES, CYCLE 4 SEQUENCE 1
     Route: 048
     Dates: start: 20121128, end: 20121128
  21. APREPITANT [Suspect]
     Dosage: 80 MG DAILY.
     Route: 048
     Dates: start: 20120922, end: 20120922
  22. APREPITANT [Suspect]
     Dosage: 125 MG, DAILY. DOSAGE FORM: CAPSULES, ON DAY ONE, 60 MINUTES PRIOR CHEMOTHERAPY CYCLE 1 SEQUENCE 1
     Route: 048
     Dates: start: 20120921, end: 20120921
  23. APREPITANT [Suspect]
     Dosage: 125 MG, DAILY. CAPSULES, CYCLE 3 SEQUENCE 1
     Route: 048
     Dates: start: 20121107, end: 20121107
  24. APREPITANT [Suspect]
     Dosage: 80 MG, DAILY. DOSAGE FORM: CAPSULES, CYCLE 2 SEQUENCE 1
     Route: 048
     Dates: start: 20121018, end: 20121018
  25. APREPITANT [Suspect]
     Dosage: 80 MG, DAILY. CAPSULES, CYCLE 2 SEQUNCE 1
     Route: 048
     Dates: start: 20121019, end: 20121019
  26. APREPITANT [Suspect]
     Dosage: 80 MG, DAILY. DOSAGE FORM: CAPSULES, CYCLE 1 SEQUENCE 1
     Route: 048
     Dates: start: 20121017, end: 20121017
  27. APREPITANT [Suspect]
     Dosage: 80 MG, DAILY. CAPSULES, CYCLE 2 SEQUENCE 1
     Route: 048
     Dates: start: 20120923, end: 20120923
  28. APREPITANT [Suspect]
     Dosage: 80 MG, DAILY. DOSAGE FORM: CAPSULES, CYCLE 1 SEQUENCE 3
     Route: 048
     Dates: start: 20120923, end: 20120923
  29. APREPITANT [Suspect]
     Dosage: UNK
  30. IFOSFAMIDE [Suspect]
     Indication: NEOPLASM MALIGNANT
     Dosage: 4200 MG, DAILY
     Route: 042
     Dates: start: 20120921, end: 20120923
  31. IFOSFAMIDE [Suspect]
     Indication: CHEMOTHERAPY
     Dosage: 4200 MG, DAILY
     Route: 042
     Dates: start: 20121017, end: 20121019
  32. IFOSFAMIDE [Suspect]
     Dosage: 4200 MG, DAILY
     Dates: start: 20121017, end: 20121019
  33. IFOSFAMIDE [Suspect]
     Dosage: 4200 MG, DAILY
     Route: 042
     Dates: start: 20120921, end: 20120923
  34. NORETHINDRONE [Concomitant]
     Indication: MENSTRUAL DISORDER
     Dosage: 5 MG, TID. DOSAGE FORM: TABLET
     Route: 048
     Dates: start: 20120903
  35. CODEINE PHOSPHATE [Concomitant]
     Indication: ANALGESIC THERAPY
     Dosage: 30 MG, QID.
     Route: 048
     Dates: start: 20120830
  36. CODEINE PHOSPHATE [Concomitant]
     Dosage: 60 MG, DAILY
     Route: 048
     Dates: start: 20121005, end: 20121005
  37. HEPARIN [Concomitant]
     Indication: PRODUCT USED FOR UNKNOWN INDICATION
     Dosage: UNKNOWN. DOSAGE FORM: INTRAVENOUS INFUSION
     Route: 042
     Dates: start: 20120914
  38. HEPARIN [Concomitant]
     Indication: ANTICOAGULANT THERAPY
     Dosage: 5 ML, DAILY. DOSAGE FORM: UNSPECIFIED
     Route: 042
     Dates: start: 20120914
  39. MESNA [Concomitant]
     Indication: PROPHYLAXIS
     Dosage: UNK. DOSAGE FORM: INJECTION
     Route: 042
     Dates: start: 20121017, end: 20121019
  40. MESNA [Concomitant]
     Dosage: 5040 MG, DAILY. DOSAGE FORM: INJECTION
     Route: 042
     Dates: start: 20120921, end: 20120924
  41. MESNA [Concomitant]
     Dosage: UNK. DOSAGE FORM: UNSPECIFIED
     Route: 065
     Dates: start: 20121017, end: 20121019
  42. CYCLIZINE [Concomitant]
     Indication: ANTIEMETIC SUPPORTIVE CARE
     Dosage: 50 MG, DAILY. DOSAGE FORM: TABLET
     Route: 048
     Dates: start: 20121017, end: 20121017
  43. CYCLIZINE [Concomitant]
     Dosage: 50 MG, TID. DOSAGE FORM: TABLET
     Route: 048
     Dates: start: 20120923, end: 20120923
  44. CODEINE [Concomitant]
     Indication: ANALGESIC THERAPY
     Dosage: 60 MG, DAILY. DOSAGE FORM: UNSPECIFIED
     Route: 048
     Dates: start: 20121005, end: 20121005
  45. CO-AMOXICLAV                       /00756801/ [Concomitant]
     Indication: MUCOSAL INFLAMMATION
     Dosage: 375 MG, TID. DOSAGE FORM: UNSPECIFIED
     Route: 048
     Dates: start: 20121030, end: 201211
  46. CO-AMOXICLAV                       /00756801/ [Concomitant]
     Indication: INFECTION
     Dosage: UNK
  47. PARACETAMOL [Concomitant]
     Indication: ANALGESIC THERAPY
     Dosage: 750 MG, DAILY
     Route: 048
     Dates: start: 20121005, end: 20121006
  48. PARACETAMOL [Concomitant]
     Dosage: UNK
  49. CIPROFLOXACIN [Concomitant]
     Indication: MUCOSAL INFLAMMATION
     Dosage: 750 MG, TID. DOSAGE FORM: UNSPECIFIED
     Route: 048
     Dates: start: 20121030, end: 201211
  50. CIPROFLOXACIN [Concomitant]
     Indication: INFECTION
     Dosage: UNK
  51. FENTANYL [Concomitant]
     Indication: PAIN
     Dosage: UNKNOWN. DOSAGE FORM: UNSPECIFIED
     Route: 065
     Dates: start: 20121030
  52. OXYCODONE [Concomitant]
     Indication: PAIN
     Dosage: UNK
     Route: 042
     Dates: start: 20121030, end: 20121030
  53. OXYCODONE [Concomitant]
     Dosage: 10 MG, BID. DOSAGE FORM: TABLET
     Route: 048
     Dates: start: 20121122, end: 20121201
  54. BUSCOPAN [Concomitant]
     Indication: PRODUCT USED FOR UNKNOWN INDICATION
     Dosage: UNKNOWN. DOSAGE FORM: UNSPECIFIED
     Route: 065
     Dates: start: 20121005, end: 20121008
  55. CALCICHEW [Concomitant]
     Indication: PRODUCT USED FOR UNKNOWN INDICATION
     Dosage: UNK. DOSAGE FORM: UNSPECIFIED
     Route: 065
     Dates: start: 20121005, end: 20121009
  56. HYPROMELLOSE [Concomitant]
     Indication: PRODUCT USED FOR UNKNOWN INDICATION
     Dosage: UNKNOWN. DOSAGE FORM: LIQUID
     Route: 047
     Dates: start: 20121019
  57. TEICOPLANIN [Concomitant]
     Indication: DEVICE RELATED INFECTION
     Dosage: 400 MG, DAILY. DOSAGE FORM: INJECTION
     Route: 042
     Dates: start: 20120915, end: 20120920
  58. RED BLOOD CELLS [Concomitant]
     Indication: HAEMOGLOBIN DECREASED
     Dosage: 2 DF DOSAGE FORM. DOSAGE FORM: UNSPECIFIED
     Route: 042
     Dates: start: 20120924, end: 20120924
  59. INSTILLAGEL [Concomitant]
     Indication: ANAESTHESIA
     Dosage: UNK
     Route: 061
     Dates: start: 20121006, end: 20121016

REACTIONS (11)
  - Febrile neutropenia [Recovered/Resolved]
  - Periorbital cellulitis [Recovered/Resolved]
  - Medical device complication [Recovered/Resolved]
  - Constipation [Recovered/Resolved]
  - Haemoglobin decreased [Not Recovered/Not Resolved]
  - Diarrhoea [Recovered/Resolved]
  - Vena cava thrombosis [Not Recovered/Not Resolved]
  - Medical device complication [Unknown]
  - Abdominal pain [Recovered/Resolved]
  - Mucosal inflammation [Recovered/Resolved]
  - Off label use [Unknown]
